FAERS Safety Report 8170585-0 (Version None)
Quarter: 2012Q1

REPORT INFORMATION
  Report Type: 
  Country: None (occurrence: None)
  Receive Date: 20120106
  Receipt Date: 20110706
  Transmission Date: 20120608
  Serious: Yes (Other)
  Sender: FDA-Public Use
  Company Number: US-006425

PATIENT
  Age: 45 Year
  Sex: Female
  Weight: 88.6 kg

DRUGS (5)
  1. COUMADIN [Concomitant]
  2. MULTIHANCE [Suspect]
     Indication: BRAIN NEOPLASM
     Dosage: 18ML ONCE INTRAVENOUS (NOT OTHERWISE SPECIFIED)
     Route: 042
     Dates: start: 20110628, end: 20110628
  3. MULTIHANCE [Suspect]
     Indication: NUCLEAR MAGNETIC RESONANCE IMAGING BRAIN
     Dosage: 18ML ONCE INTRAVENOUS (NOT OTHERWISE SPECIFIED)
     Route: 042
     Dates: start: 20110628, end: 20110628
  4. CHEMOTHERAPY [Concomitant]
  5. PROTONIX (PANTOPRAZOLE SODIUM SESQUIHYDRATE) [Concomitant]

REACTIONS (1)
  - ANAPHYLACTIC SHOCK [None]
